FAERS Safety Report 6634656-X (Version None)
Quarter: 2010Q1

REPORT INFORMATION
  Report Type: 
  Country: None (occurrence: None)
  Receive Date: 20100315
  Receipt Date: 20100309
  Transmission Date: 20100710
  Serious: Yes (Life-Threatening)
  Sender: FDA-Public Use
  Company Number: B0639080A

PATIENT
  Sex: Male

DRUGS (5)
  1. AMOXICILLIN [Suspect]
     Indication: TRACHEOBRONCHITIS
     Dosage: 1G PER DAY
     Route: 048
     Dates: start: 20100215, end: 20100215
  2. DOLIPRANE [Suspect]
     Indication: TRACHEOBRONCHITIS
     Dosage: 1G THREE TIMES PER DAY
     Route: 048
     Dates: start: 20100215, end: 20100215
  3. RHINADVIL [Suspect]
     Indication: TRACHEOBRONCHITIS
     Dosage: 1UNIT THREE TIMES PER DAY
     Route: 048
     Dates: start: 20100215, end: 20100215
  4. PLAVIX [Concomitant]
     Route: 065
  5. CRESTOR [Concomitant]
     Route: 065

REACTIONS (7)
  - ANAPHYLACTIC SHOCK [None]
  - FALL [None]
  - FLATULENCE [None]
  - GENERALISED ERYTHEMA [None]
  - LOSS OF CONSCIOUSNESS [None]
  - NAUSEA [None]
  - PRURITUS [None]
